FAERS Safety Report 12735496 (Version 2)
Quarter: 2016Q3

REPORT INFORMATION
  Report Type: Spontaneous
  Country: IT (occurrence: IT)
  Receive Date: 20160912
  Receipt Date: 20160919
  Transmission Date: 20161109
  Serious: Yes (Hospitalization, Other)
  Sender: FDA-Public Use
  Company Number: IT-PFIZER INC-2016416192

PATIENT
  Sex: Male

DRUGS (1)
  1. QUARK [Suspect]
     Active Substance: RAMIPRIL
     Indication: HYPERTENSION
     Dosage: 2.5 MG, DAILY
     Route: 048
     Dates: end: 201606

REACTIONS (3)
  - Arrhythmia [Recovering/Resolving]
  - Blood pressure inadequately controlled [Recovering/Resolving]
  - Troponin increased [Recovering/Resolving]

NARRATIVE: CASE EVENT DATE: 20160829
